FAERS Safety Report 14225096 (Version 2)
Quarter: 2017Q4

REPORT INFORMATION
  Report Type: Spontaneous
  Country: JP (occurrence: JP)
  Receive Date: 20171127
  Receipt Date: 20171211
  Transmission Date: 20180321
  Serious: Yes (Hospitalization)
  Sender: FDA-Public Use
  Company Number: JP-ELI_LILLY_AND_COMPANY-JP201710012880

PATIENT
  Age: 81 Year
  Sex: Male
  Weight: 58 kg

DRUGS (3)
  1. TALTZ [Suspect]
     Active Substance: IXEKIZUMAB
     Indication: ERYTHRODERMIC PSORIASIS
     Dosage: UNK
     Route: 058
     Dates: start: 20170509, end: 20171003
  2. AMLODINE                           /00972401/ [Concomitant]
     Dosage: UNK
     Route: 048
     Dates: start: 20170413, end: 20171022
  3. XYZAL [Concomitant]
     Active Substance: LEVOCETIRIZINE DIHYDROCHLORIDE
     Dosage: UNK
     Route: 048
     Dates: start: 20171003, end: 20171022

REACTIONS (5)
  - Hepatic steatosis [Unknown]
  - Hepatic function abnormal [Not Recovered/Not Resolved]
  - General physical health deterioration [Recovering/Resolving]
  - Decreased appetite [Not Recovered/Not Resolved]
  - Cardiac failure [Unknown]

NARRATIVE: CASE EVENT DATE: 201710
